FAERS Safety Report 20001057 (Version 1)
Quarter: 2021Q4

REPORT INFORMATION
  Report Type: Spontaneous
  Country: US (occurrence: US)
  Receive Date: 20211027
  Receipt Date: 20211027
  Transmission Date: 20220303
  Serious: Yes (Other)
  Sender: FDA-Public Use
  Company Number: US-TOPROL-2021000234

PATIENT
  Age: 71 Year
  Sex: Female

DRUGS (6)
  1. METOPROLOL SUCCINATE [Suspect]
     Active Substance: METOPROLOL SUCCINATE
     Dosage: I AM TAKING 150MG PER NIGHT.
  2. METOPROLOL SUCCINATE [Suspect]
     Active Substance: METOPROLOL SUCCINATE
     Dosage: THIS MORNING I HAD TO TAKE ANOTHER 50MG.
     Dates: start: 20211021
  3. WARFARIN [Concomitant]
     Active Substance: WARFARIN
     Dosage: ON MONDAYS, WEDNESDAYS AND FRIDAYS
  4. WARFARIN [Concomitant]
     Active Substance: WARFARIN
     Dosage: THE REST OF THE WEEK
  5. OMEPRAZOLE [Concomitant]
     Active Substance: OMEPRAZOLE
  6. inhaler (unknown details) [Concomitant]

REACTIONS (9)
  - Atrial fibrillation [Unknown]
  - Somnolence [Unknown]
  - Dizziness [Unknown]
  - Insomnia [Unknown]
  - Vertigo [Unknown]
  - Dizziness [Unknown]
  - Balance disorder [Unknown]
  - Impaired driving ability [Unknown]
  - Product use in unapproved indication [Unknown]

NARRATIVE: CASE EVENT DATE: 20211021
